FAERS Safety Report 8066158-0 (Version None)
Quarter: 2012Q1

REPORT INFORMATION
  Report Type: 
  Country: None (occurrence: None)
  Receive Date: 20120124
  Receipt Date: 20110923
  Transmission Date: 20120608
  Serious: No
  Sender: FDA-Public Use
  Company Number: US-BRISTOL-MYERS SQUIBB COMPANY-15983034

PATIENT
  Age: 10 Year
  Sex: Male

DRUGS (1)
  1. ABILIFY [Suspect]
     Dosage: 15JUL11 DOSE INC:4ML BID,DOSE INCRE:10MG TO TAKE 1/2TAB 5MG MORN +1/2TAB 5MG NIGHT.
     Route: 048
     Dates: start: 20100401

REACTIONS (1)
  - DYSPHAGIA [None]
